FAERS Safety Report 10521860 (Version 1)
Quarter: 2014Q4

REPORT INFORMATION
  Report Type: Spontaneous
  Country: US (occurrence: None)
  Receive Date: 20141014
  Receipt Date: 20141014
  Transmission Date: 20150528
  Serious: Yes (Life-Threatening, Hospitalization)
  Sender: FDA-Public Use
  Company Number: None

PATIENT
  Age: 62 Year
  Sex: Male
  Weight: 94.6 kg

DRUGS (21)
  1. AMLODIPINE (NORVASC) [Concomitant]
  2. TRYPSIN-BALSAM-CASTOR OIL (VASOLEX) [Concomitant]
  3. GABAPENTIN (NEURONTIN) [Concomitant]
  4. VITAMINS MULTIPLE THERAPEUTIC (THERAGRAN) [Concomitant]
  5. DME MISC [Concomitant]
  6. HYDROCODONE-ACETAMINOPHEN (HYCET) [Concomitant]
  7. SIMVASTATIN (ZOCOR) [Concomitant]
  8. IPRATROPIUM-ALBUTEROL (DUONEB) [Concomitant]
  9. CLONIDINE PATCH [Concomitant]
  10. NYSTATIN (MYCOSTATIN) [Concomitant]
  11. FENTANYL (DURAGESIC) [Concomitant]
  12. METOCLOPRAMIDE (REGLAN) [Concomitant]
     Active Substance: METOCLOPRAMIDE HYDROCHLORIDE
  13. TYLENOL [Concomitant]
     Active Substance: ACETAMINOPHEN
  14. LEVETIRACETAM (KEPPRA) [Concomitant]
  15. LANSOPRAZOLE (PREVACID SOLUTAB) [Concomitant]
  16. HYDROCHLOROTHIAZIDE. [Concomitant]
     Active Substance: HYDROCHLOROTHIAZIDE
  17. LISINOPRIL 20 MG [Suspect]
     Active Substance: LISINOPRIL
     Indication: HYPERTENSION
     Dosage: 1 PILL
     Route: 048
     Dates: start: 20140924, end: 20141007
  18. ALBUTEROL (PROVENTIL) [Concomitant]
  19. LACTOBACILLUS ACIDOPHILUS (PROBIOTIC) [Concomitant]
  20. METOPROLOL TARTRATE (LOPRESSOR) [Concomitant]
  21. PHENYTOIN (DILANTIN) ER [Concomitant]
     Active Substance: PHENYTOIN

REACTIONS (1)
  - Hyperkalaemia [None]

NARRATIVE: CASE EVENT DATE: 20141007
